FAERS Safety Report 5075840-9 (Version None)
Quarter: 2006Q3

REPORT INFORMATION
  Report Type: 
  Country: None (occurrence: None)
  Receive Date: 20060809
  Receipt Date: 20060119
  Transmission Date: 20061208
  Serious: No
  Sender: FDA-Public Use
  Company Number: US-AMGEN-KDL166309

PATIENT
  Sex: Female
  Weight: 76.7 kg

DRUGS (8)
  1. PROCRIT [Suspect]
     Indication: ANAEMIA OF MALIGNANT DISEASE
     Dates: start: 20051212, end: 20051222
  2. COREG [Concomitant]
     Route: 048
  3. TORSEMIDE [Concomitant]
     Route: 048
  4. DIGOXIN [Concomitant]
     Route: 048
  5. POTASSIUM CHLORIDE [Concomitant]
     Route: 048
  6. EFFEXOR [Concomitant]
     Route: 048
  7. DEPAKOTE [Concomitant]
     Route: 048
  8. LOTENSIN [Concomitant]
     Route: 048

REACTIONS (4)
  - ASTHENIA [None]
  - CONDITION AGGRAVATED [None]
  - FATIGUE [None]
  - SOMNOLENCE [None]
